FAERS Safety Report 5828540-9 (Version None)
Quarter: 2008Q3

REPORT INFORMATION
  Report Type: 
  Country: None (occurrence: None)
  Receive Date: 20080731
  Receipt Date: 20080725
  Transmission Date: 20090109
  Serious: Yes (Other)
  Sender: FDA-Public Use
  Company Number: JP-ASTRAZENECA-2008AP05743

PATIENT
  Sex: Male

DRUGS (1)
  1. DIPRIVAN [Suspect]
     Dosage: DOSE UNKNOWN
     Route: 042

REACTIONS (1)
  - ANAPHYLACTIC SHOCK [None]
